FAERS Safety Report 5120015-8 (Version None)
Quarter: 2006Q3

REPORT INFORMATION
  Report Type: 
  Country: None (occurrence: None)
  Receive Date: 20060929
  Receipt Date: 20060920
  Transmission Date: 20061208
  Serious: Yes (Death, Hospitalization)
  Sender: FDA-Public Use
  Company Number: 2006JP002305

PATIENT
  Age: 82 Year
  Sex: Female

DRUGS (14)
  1. PROGRAF [Suspect]
     Indication: RHEUMATOID ARTHRITIS
     Dosage: 2 MG, UID/QD, ORAL
     Route: 048
     Dates: start: 20060126, end: 20060718
  2. PREDNISOLONE [Concomitant]
  3. CLINORIL (SULINDAC) TABLET [Concomitant]
  4. GEFANIL (GEFARNATE) CAPSULE [Concomitant]
  5. FOSAMAC (ALENDRONATE SODIUM) TABLET [Concomitant]
  6. URSO (URSODEOXYCHOLIC ACID) TABLET [Concomitant]
  7. HALCION [Concomitant]
  8. CALCITORAN (CALCITONIN, SALMON) INJECTION [Concomitant]
  9. FESIN (SACCHARARED IRON OXIDE) INJECTION [Concomitant]
  10. OMEPRAZON (OMEPRAZOLE) TABLET [Concomitant]
  11. FERROMIA (FERROUS CITRATE) TABLET [Concomitant]
  12. ALOSENN (TARAXACUM CITRATE) TABLET [Concomitant]
  13. RUBIA TINCTRUM ROOT TINCTURE) [Concomitant]
  14. FLORID (MICONAZOLE NITRATE) GEL [Concomitant]

REACTIONS (12)
  - ASCITES [None]
  - CALCULUS URETERIC [None]
  - CONSTIPATION [None]
  - DISSEMINATED INTRAVASCULAR COAGULATION [None]
  - ESCHERICHIA INFECTION [None]
  - INSOMNIA [None]
  - IRON DEFICIENCY ANAEMIA [None]
  - KLEBSIELLA INFECTION [None]
  - OESOPHAGEAL CANDIDIASIS [None]
  - PYELONEPHRITIS [None]
  - SEPSIS [None]
  - SHOCK [None]
